FAERS Safety Report 8978392 (Version 1)
Quarter: 2012Q4

REPORT INFORMATION
  Report Type: Spontaneous
  Country: US (occurrence: None)
  Receive Date: 20121218
  Receipt Date: 20121218
  Transmission Date: 20130627
  Serious: No
  Sender: FDA-Public Use
  Company Number: None

PATIENT
  Sex: Female
  Weight: 90.72 kg

DRUGS (1)
  1. CLOPIDOGREL BISULFATE [Suspect]
     Indication: TIA
     Dosage: 75mg daily by mouth
     Route: 048

REACTIONS (3)
  - Swelling face [None]
  - Oedema peripheral [None]
  - Lip swelling [None]
